FAERS Safety Report 10190200 (Version 1)
Quarter: 2014Q2

REPORT INFORMATION
  Report Type: Report from Study
  Country: US (occurrence: US)
  Receive Date: 20140522
  Receipt Date: 20140522
  Transmission Date: 20141212
  Serious: Yes (Death)
  Sender: FDA-Public Use
  Company Number: GXBR2014US001290

PATIENT
  Sex: Male

DRUGS (1)
  1. ENOXAPARIN SODIUM [Suspect]
     Indication: BRAIN NEOPLASM MALIGNANT
     Dosage: 60 MG, Q12H
     Route: 058

REACTIONS (1)
  - Death [Fatal]
